FAERS Safety Report 13053295 (Version 1)
Quarter: 2016Q4

REPORT INFORMATION
  Report Type: Spontaneous
  Country: US (occurrence: US)
  Receive Date: 20161222
  Receipt Date: 20161222
  Transmission Date: 20170207
  Serious: No
  Sender: FDA-Public Use
  Company Number: US-009507513-1612USA007423

PATIENT
  Age: 28 Year
  Sex: Female
  Weight: 52.15 kg

DRUGS (1)
  1. NEXPLANON [Suspect]
     Active Substance: ETONOGESTREL
     Indication: CONTRACEPTION
     Dosage: 3 YEARS, IN THE LEFT ARM
     Route: 059
     Dates: start: 20160402

REACTIONS (2)
  - Menstrual disorder [Unknown]
  - Syncope [Unknown]

NARRATIVE: CASE EVENT DATE: 2016
